FAERS Safety Report 4903397-9 (Version None)
Quarter: 2006Q1

REPORT INFORMATION
  Report Type: 
  Country: None (occurrence: None)
  Receive Date: 20060203
  Receipt Date: 20060120
  Transmission Date: 20060701
  Serious: Yes (Life-Threatening, Hospitalization)
  Sender: FDA-Public Use
  Company Number: 2005-02502

PATIENT
  Age: 61 Year
  Sex: 0

DRUGS (4)
  1. VELCADE [Suspect]
     Indication: MULTIPLE MYELOMA
     Dosage: 1.30 MG/M2, INTRAVENOUS
     Route: 042
  2. DEXAMETHASONE [Suspect]
     Indication: MULTIPLE MYELOMA
     Dosage: 40.00 MG, ORAL
     Route: 048
  3. ADRIAMYCIN PFS [Suspect]
     Indication: MULTIPLE MYELOMA
     Dosage: 9.00 MG/M2, ORAL
     Route: 048
  4. ESOMEPRAZOLE (ESOMEPRAZOLE) [Concomitant]

REACTIONS (4)
  - ABDOMINAL PAIN [None]
  - COLITIS [None]
  - DIARRHOEA HAEMORRHAGIC [None]
  - MUCOSAL INFLAMMATION [None]
